FAERS Safety Report 9511750 (Version 1)
Quarter: 2013Q1

REPORT INFORMATION
  Report Type: Spontaneous
  Country: US (occurrence: None)
  Receive Date: 20130305
  Receipt Date: 20130305
  Transmission Date: 20140127
  Serious: Yes (Other)
  Sender: FDA-Public Use
  Company Number: 163-21880-11110461

PATIENT
  Age: 63 Year
  Sex: Female

DRUGS (5)
  1. REVLIMID (LENALIDOMIDE) (25 MILLIGRAM, CAPSULES) [Suspect]
     Dosage: 25 MG, DAILY X 21 DAYS, PO
     Route: 048
     Dates: start: 20080512, end: 2010
  2. CYTOXAN (CYCLOPHOSPHAMIDE) (UNKNOWN) [Concomitant]
  3. LEVAQUIN (LEVOFLOXACIN) (UNKNOWN) [Concomitant]
  4. VALACYCLOVIR (VALACICLOVIR) (UNKNOWN) [Concomitant]
  5. PREDNISONE (PREDNISONE) (UNKNOWN) [Concomitant]

REACTIONS (3)
  - Pancytopenia [None]
  - Pneumonia [None]
  - Plasma cell myeloma [None]
